FAERS Safety Report 24382416 (Version 1)
Quarter: 2024Q4

REPORT INFORMATION
  Report Type: Spontaneous
  Country: DE (occurrence: DE)
  Receive Date: 20241001
  Receipt Date: 20241001
  Transmission Date: 20250114
  Serious: Yes (Other)
  Sender: CELLTRION
  Company Number: DE-ABBVIE-5695751

PATIENT

DRUGS (4)
  1. ADALIMUMAB [Suspect]
     Active Substance: ADALIMUMAB
     Indication: Crohn^s disease
     Dosage: UNK
     Route: 058
     Dates: start: 2014, end: 2021
  2. ADALIMUMAB [Suspect]
     Active Substance: ADALIMUMAB
     Indication: Rheumatoid arthritis
  3. PREDNISOLONE ACETATE [Concomitant]
     Active Substance: PREDNISOLONE ACETATE
     Indication: Crohn^s disease
     Dosage: 10 MG
  4. PREDNISOLONE ACETATE [Concomitant]
     Active Substance: PREDNISOLONE ACETATE
     Indication: Rheumatoid arthritis

REACTIONS (3)
  - Crohn^s disease [Unknown]
  - Joint swelling [Unknown]
  - Therapeutic product effect decreased [Unknown]
